FAERS Safety Report 7465421-1 (Version None)
Quarter: 2011Q2

REPORT INFORMATION
  Report Type: 
  Country: None (occurrence: None)
  Receive Date: 20110509
  Receipt Date: 20110226
  Transmission Date: 20111010
  Serious: No
  Sender: FDA-Public Use
  Company Number: US-BAUSCH-2011BL001215

PATIENT
  Age: 62 Year
  Sex: Female

DRUGS (6)
  1. VITAMIN D [Concomitant]
  2. MULTI-VITAMINS [Concomitant]
  3. VITAMIN A [Concomitant]
  4. LOTEMAX [Suspect]
     Indication: BLEPHARITIS
     Route: 047
     Dates: start: 20110218, end: 20110220
  5. PREMARIN [Concomitant]
  6. LOVAZA [Concomitant]

REACTIONS (3)
  - EYELID MARGIN CRUSTING [None]
  - EYE IRRITATION [None]
  - EYE SWELLING [None]
